FAERS Safety Report 4552813-3 (Version None)
Quarter: 2005Q1

REPORT INFORMATION
  Report Type: 
  Country: None (occurrence: None)
  Receive Date: 20050114
  Receipt Date: 20050107
  Transmission Date: 20050727
  Serious: Yes (Other)
  Sender: FDA-Public Use
  Company Number: US-ROCHE-392178

PATIENT
  Age: 30 Year
  Sex: Female

DRUGS (2)
  1. ACCUTANE [Suspect]
     Route: 048
     Dates: end: 19990422
  2. ORAL CONTRACEPTIVE PILL [Concomitant]
     Route: 048

REACTIONS (1)
  - ECTOPIC PREGNANCY [None]
